FAERS Safety Report 13253784 (Version 1)
Quarter: 2017Q1

REPORT INFORMATION
  Report Type: Report from Study
  Country: US (occurrence: US)
  Receive Date: 20170220
  Receipt Date: 20170220
  Transmission Date: 20170428
  Serious: Yes (Death, Other)
  Sender: FDA-Public Use
  Company Number: US-MYLANLABS-2017M1009481

PATIENT

DRUGS (2)
  1. VELIPARIB [Suspect]
     Active Substance: VELIPARIB
     Indication: HORMONE-REFRACTORY PROSTATE CANCER
     Dosage: 40MG TWICE A DAY ON DAYS 1-7 (ALL CYCLES)
     Route: 048
  2. TEMOZOLOMIDE. [Suspect]
     Active Substance: TEMOZOLOMIDE
     Indication: HORMONE-REFRACTORY PROSTATE CANCER
     Dosage: 150 MG/M2/DAY ONCE A DAY ON DAYS 1-5 IN 28 DAY CYCLES
     Route: 048

REACTIONS (1)
  - Hepatorenal syndrome [Fatal]
